FAERS Safety Report 7354100-7 (Version None)
Quarter: 2011Q1

REPORT INFORMATION
  Report Type: 
  Country: None (occurrence: None)
  Receive Date: 20110315
  Receipt Date: 20110309
  Transmission Date: 20110831
  Serious: Yes (Hospitalization)
  Sender: FDA-Public Use
  Company Number: AU-MERCK-1102USA02059

PATIENT
  Age: 65 Year
  Sex: Female

DRUGS (14)
  1. ZETIA [Suspect]
     Route: 048
     Dates: start: 20100101
  2. ZANIDIP [Concomitant]
     Route: 065
  3. OMEPRAZOLE [Concomitant]
     Route: 065
  4. AMITRIPTYLINE HYDROCHLORIDE [Concomitant]
     Route: 065
  5. OXYCONTIN [Concomitant]
     Route: 065
  6. GLICLAZIDE [Concomitant]
     Route: 065
  7. MICARDIS [Concomitant]
     Route: 065
  8. ERGOCALCIFEROL [Concomitant]
     Route: 065
  9. THYROXIN [Concomitant]
     Route: 065
  10. PREGABALIN [Concomitant]
     Route: 065
  11. DIAZEPAM [Concomitant]
     Route: 065
  12. ZETIA [Suspect]
     Route: 048
     Dates: start: 20110202
  13. METFORMIN HYDROCHLORIDE [Concomitant]
     Route: 065
  14. ACETAMINOPHEN [Concomitant]
     Route: 065

REACTIONS (3)
  - MALAISE [None]
  - HEPATIC FUNCTION ABNORMAL [None]
  - HEPATITIS [None]
